FAERS Safety Report 8489057-9 (Version None)
Quarter: 2012Q3

REPORT INFORMATION
  Report Type: 
  Country: None (occurrence: None)
  Receive Date: 20120705
  Receipt Date: 20120621
  Transmission Date: 20120928
  Serious: Yes (Other)
  Sender: FDA-Public Use
  Company Number: CH-ROCHE-1080902

PATIENT
  Age: 78 Year
  Sex: Female
  Weight: 87.6 kg

DRUGS (14)
  1. POTASSIUM BITARTRATE/SODIUM BICARBONATE [Concomitant]
     Indication: HYPOKALAEMIA
     Route: 048
     Dates: start: 20120517, end: 20120519
  2. LAXOBERON [Concomitant]
     Indication: CONSTIPATION
     Route: 048
     Dates: start: 20120522
  3. PRAVASTATIN [Suspect]
     Indication: HYPERLIPIDAEMIA
     Route: 048
     Dates: start: 20120517
  4. MOTILIUM (SWITZERLAND) [Concomitant]
     Indication: VOMITING
  5. MAGNESIOCARD [Concomitant]
     Route: 048
     Dates: start: 20120517, end: 20120522
  6. ROCEPHIN [Suspect]
     Indication: URINARY TRACT INFECTION
     Route: 041
     Dates: start: 20120516, end: 20120519
  7. CRESTOR [Suspect]
     Indication: HYPERLIPIDAEMIA
     Route: 048
     Dates: start: 20120517
  8. DIAMICRON [Concomitant]
     Indication: DIABETES MELLITUS
     Route: 048
  9. KONAKION [Concomitant]
     Indication: COAGULOPATHY
     Route: 040
     Dates: start: 20120516, end: 20120518
  10. KONAKION [Concomitant]
     Route: 040
     Dates: start: 20120523, end: 20120523
  11. ACETAMINOPHEN [Concomitant]
     Indication: ABDOMINAL PAIN UPPER
     Route: 048
     Dates: end: 20120527
  12. NOVORAPID [Concomitant]
     Indication: DIABETES MELLITUS
     Route: 058
  13. IRBESARTAN [Concomitant]
     Indication: HYPERTENSION
     Route: 048
  14. MOTILIUM (SWITZERLAND) [Concomitant]
     Indication: NAUSEA
     Route: 048
     Dates: start: 20120517, end: 20120521

REACTIONS (1)
  - PANCREATITIS ACUTE [None]
